FAERS Safety Report 8188290-3 (Version None)
Quarter: 2012Q1

REPORT INFORMATION
  Report Type: 
  Country: None (occurrence: None)
  Receive Date: 20120306
  Receipt Date: 20120223
  Transmission Date: 20120608
  Serious: Yes (Hospitalization, Other)
  Sender: FDA-Public Use
  Company Number: US-ELI_LILLY_AND_COMPANY-US201103003537

PATIENT
  Sex: Female

DRUGS (18)
  1. FORTEO [Suspect]
     Dosage: 20 UG, QD
  2. LISINOPRIL [Concomitant]
     Dosage: UNK, UNKNOWN
  3. PREDNISONE TAB [Concomitant]
     Dosage: UNK, UNKNOWN
  4. FENTANYL [Concomitant]
     Dosage: UNK, UNKNOWN
  5. NOVOLOG [Concomitant]
     Dosage: UNK, UNKNOWN
  6. ENBREL [Concomitant]
     Dosage: UNK, UNKNOWN
  7. FLUOXETINE HCL [Concomitant]
     Dosage: UNK, UNKNOWN
  8. LANTUS [Concomitant]
     Dosage: UNK, UNKNOWN
  9. CALCITRAL [Concomitant]
     Dosage: UNK, UNKNOWN
  10. OMEPRAZOLE [Concomitant]
     Dosage: UNK, UNKNOWN
  11. SODIUM BICARBONATE [Concomitant]
     Dosage: UNK, UNKNOWN
  12. FORTEO [Suspect]
     Indication: OSTEOPOROSIS
     Dosage: 20 UG, DAILY (1/D)
  13. FUROSEMIDE [Concomitant]
     Dosage: UNK, UNKNOWN
  14. ALENDRONATE SODIUM [Concomitant]
     Dosage: UNK, UNKNOWN
  15. LOVAZA [Concomitant]
     Dosage: UNK, UNKNOWN
  16. PERCOCET [Concomitant]
     Dosage: UNK, UNKNOWN
  17. LEVOTHROID [Concomitant]
     Dosage: UNK, UNKNOWN
  18. PRAVASTATIN [Concomitant]
     Dosage: UNK, UNKNOWN

REACTIONS (4)
  - FALL [None]
  - PNEUMONIA [None]
  - HIP FRACTURE [None]
  - URINARY TRACT INFECTION [None]
